FAERS Safety Report 12311086 (Version 2)
Quarter: 2016Q3

REPORT INFORMATION
  Report Type: Spontaneous
  Country: JP (occurrence: JP)
  Receive Date: 20160427
  Receipt Date: 20160714
  Transmission Date: 20161109
  Serious: Yes (Death, Hospitalization, Other)
  Sender: FDA-Public Use
  Company Number: JP-GILEAD-2016-0208521

PATIENT
  Age: 71 Year
  Sex: Female

DRUGS (13)
  1. BAYASPIRIN [Concomitant]
     Active Substance: ASPIRIN
     Dosage: 100 MG, QD
     Dates: start: 20151222
  2. LUPRAC [Concomitant]
     Active Substance: TORSEMIDE
     Dosage: 8 MG, QD
     Dates: start: 20151222
  3. FUROSEMIDE. [Concomitant]
     Active Substance: FUROSEMIDE
     Dosage: 40 MG, QD
     Dates: start: 20151222
  4. BENIDIPINE HCL [Concomitant]
     Dosage: 4 MG, BID
     Dates: start: 20151222
  5. HARVONI [Suspect]
     Active Substance: LEDIPASVIR\SOFOSBUVIR
     Indication: PRODUCT USED FOR UNKNOWN INDICATION
     Dosage: 1 DF, QD
     Route: 048
     Dates: start: 20151203, end: 20160217
  6. ARTIST [Concomitant]
     Active Substance: CARVEDILOL
     Dosage: 2.5 MG, QD
     Dates: start: 20151222
  7. SUNBAZON [Concomitant]
     Dosage: 50 MG, TID
     Dates: start: 20151222
  8. LANSOPRAZOLE. [Concomitant]
     Active Substance: LANSOPRAZOLE
     Dosage: 15 MG, QD
     Dates: start: 20151222
  9. ETIZOLAM [Concomitant]
     Active Substance: ETIZOLAM
     Dosage: 0.5 MG, TID
     Dates: start: 20151222
  10. MOHRUS L [Concomitant]
     Active Substance: KETOPROFEN
     Dosage: 1 DF, QD
     Route: 062
     Dates: start: 20151222
  11. ROHYPNOL [Concomitant]
     Active Substance: FLUNITRAZEPAM
     Dosage: 1 DF, QHS
     Dates: start: 20151222
  12. ALLOPURINOL. [Concomitant]
     Active Substance: ALLOPURINOL
     Dosage: 100 MG, QD
     Dates: start: 20151222
  13. SENNOSIDE                          /00571901/ [Concomitant]
     Active Substance: SENNOSIDES A AND B
     Dosage: 24 MG, QHS
     Dates: start: 20151222

REACTIONS (4)
  - Oesophageal varices haemorrhage [Unknown]
  - Blood pressure decreased [Unknown]
  - Death [Fatal]
  - Mediastinitis [Unknown]

NARRATIVE: CASE EVENT DATE: 20160315
